FAERS Safety Report 7042644-7 (Version None)
Quarter: 2010Q4

REPORT INFORMATION
  Report Type: 
  Country: None (occurrence: None)
  Receive Date: 20101013
  Receipt Date: 20091116
  Transmission Date: 20110411
  Serious: No
  Sender: FDA-Public Use
  Company Number: US-ASTRAZENECA-2009SE26548

PATIENT
  Sex: Female
  Weight: 68 kg

DRUGS (4)
  1. SYMBICORT [Suspect]
     Indication: ASTHMA
     Route: 055
     Dates: start: 20070101, end: 20090801
  2. SINGULAIR [Concomitant]
  3. NEXIUM [Concomitant]
     Indication: GASTROOESOPHAGEAL REFLUX DISEASE
  4. ADVAIR DISKUS 100/50 [Concomitant]

REACTIONS (4)
  - APHONIA [None]
  - DYSPHONIA [None]
  - SENSORY LOSS [None]
  - SPEECH DISORDER [None]
